FAERS Safety Report 19268759 (Version 1)
Quarter: 2021Q2

REPORT INFORMATION
  Report Type: Spontaneous
  Country: US (occurrence: US)
  Receive Date: 20210517
  Receipt Date: 20210517
  Transmission Date: 20210717
  Serious: No
  Sender: FDA-Public Use
  Company Number: US-HORIZON THERAPEUTICS-HZN-2021-001107

PATIENT
  Age: 31 Year
  Sex: Male

DRUGS (2)
  1. PROPYLTHIOURACIL. [Concomitant]
     Active Substance: PROPYLTHIOURACIL
     Indication: PRODUCT USED FOR UNKNOWN INDICATION
     Dosage: 100 MG, QD
     Route: 065
  2. TEPEZZA [Suspect]
     Active Substance: TEPROTUMUMAB-TRBW
     Indication: ENDOCRINE OPHTHALMOPATHY
     Dosage: INFUSION
     Route: 065
     Dates: start: 20200818, end: 20210112

REACTIONS (2)
  - Muscle spasms [Unknown]
  - Vision blurred [Unknown]

NARRATIVE: CASE EVENT DATE: 20210310
